FAERS Safety Report 5637416-1 (Version None)
Quarter: 2008Q1

REPORT INFORMATION
  Report Type: 
  Country: None (occurrence: None)
  Receive Date: 20080225
  Receipt Date: 20080213
  Transmission Date: 20080703
  Serious: Yes (Hospitalization)
  Sender: FDA-Public Use
  Company Number: FR-PFIZER INC-2008014326

PATIENT
  Sex: Male

DRUGS (8)
  1. LYRICA [Suspect]
     Indication: NEURALGIA
  2. DOMPERIDONE [Concomitant]
  3. NEXIUM [Concomitant]
  4. SEROPRAM [Concomitant]
  5. LEXOMIL [Concomitant]
  6. FENTANYL [Concomitant]
  7. LACTULOSE [Concomitant]
  8. TRIMEPRAZINE TAB [Concomitant]

REACTIONS (2)
  - HEMIPARESIS [None]
  - HYPOKALAEMIA [None]
